FAERS Safety Report 5903333-2 (Version None)
Quarter: 2008Q3

REPORT INFORMATION
  Report Type: 
  Country: None (occurrence: None)
  Receive Date: 20080926
  Receipt Date: 20080815
  Transmission Date: 20090109
  Serious: No
  Sender: FDA-Public Use
  Company Number: ADE# 08-130

PATIENT
  Age: 72 Year
  Sex: Female
  Weight: 73.4827 kg

DRUGS (1)
  1. TRAMADOL HYDROCHLORIDE AND ACETAMINOPHEN [Suspect]
     Indication: RHEUMATOID ARTHRITIS
     Dosage: TABLET EVERY 12 HOURS
     Dates: start: 20080726, end: 20080727

REACTIONS (3)
  - DYSPNOEA [None]
  - INSOMNIA [None]
  - PALPITATIONS [None]
